FAERS Safety Report 6814432-5 (Version None)
Quarter: 2010Q3

REPORT INFORMATION
  Report Type: 
  Country: None (occurrence: None)
  Receive Date: 20100702
  Receipt Date: 20100623
  Transmission Date: 20110219
  Serious: Yes (Other)
  Sender: FDA-Public Use
  Company Number: FR-JNJFOC-20100308854

PATIENT
  Age: 55 Year
  Sex: Male
  Weight: 90 kg

DRUGS (6)
  1. REMICADE [Suspect]
     Indication: PSORIASIS
     Dosage: DOSE ALSO REPORTED AS 450 MG
     Route: 042
  2. REMICADE [Suspect]
     Indication: ENTEROCOLITIS HAEMORRHAGIC
     Dosage: DOSE ALSO REPORTED AS 450 MG
     Route: 042
  3. REMICADE [Suspect]
     Indication: RHEUMATOID ARTHRITIS
     Dosage: DOSE ALSO REPORTED AS 450 MG
     Route: 042
  4. ATARAX [Concomitant]
  5. VASTAREL [Concomitant]
  6. ZOLPIDEM [Concomitant]

REACTIONS (6)
  - ERYTHEMA [None]
  - FATIGUE [None]
  - HYPERTRICHOSIS [None]
  - MALAISE [None]
  - MUSCLE MASS [None]
  - OEDEMA [None]
